FAERS Safety Report 18674797 (Version 1)
Quarter: 2020Q4

REPORT INFORMATION
  Report Type: Spontaneous
  Country: US (occurrence: US)
  Receive Date: 20201224
  Receipt Date: 20201224
  Transmission Date: 20210114
  Serious: No
  Sender: FDA-Public Use
  Company Number: None

PATIENT
  Age: 38 Year
  Sex: Female

DRUGS (1)
  1. VANCOMYCIN HYDROCHLORIDE / 1-5 GM/200ML-% BAXTER HEALTHCARE CORP [Suspect]
     Active Substance: VANCOMYCIN HYDROCHLORIDE
     Indication: PELVIC INFECTION
     Dosage: ?          OTHER STRENGTH:1-5/200 GM/ML;?
     Route: 042
     Dates: start: 20201211, end: 20201214

REACTIONS (2)
  - Rash [None]
  - Pruritus [None]

NARRATIVE: CASE EVENT DATE: 20201212
